FAERS Safety Report 10653078 (Version 2)
Quarter: 2014Q4

REPORT INFORMATION
  Report Type: Report from Study
  Country: AU (occurrence: AU)
  Receive Date: 20141215
  Receipt Date: 20141215
  Transmission Date: 20150529
  Serious: Yes (Hospitalization, Other)
  Sender: FDA-Public Use
  Company Number: PHHY2014AU120017

PATIENT
  Age: 61 Year
  Sex: Male

DRUGS (14)
  1. AMISULPRIDE [Concomitant]
     Active Substance: AMISULPRIDE
     Indication: PRODUCT USED FOR UNKNOWN INDICATION
     Dosage: 600 MG, BID
     Route: 065
  2. CARBAMAZEPINE. [Suspect]
     Active Substance: CARBAMAZEPINE
     Dosage: 200 MG MORNING AND 400 MG NIGHT
     Route: 065
  3. CARBAMAZEPINE. [Suspect]
     Active Substance: CARBAMAZEPINE
     Indication: PRODUCT USED FOR UNKNOWN INDICATION
     Dosage: 200 MG MORNING AND 400 MG NIGHT
     Route: 065
  4. BENZTROPINE [Concomitant]
     Active Substance: BENZTROPINE
     Indication: PRODUCT USED FOR UNKNOWN INDICATION
     Dosage: 0.5 MG, QD, MORNE
     Route: 065
  5. COLOXYL WITH SENNA [Concomitant]
     Active Substance: DOCUSATE\SENNOSIDES
     Indication: PRODUCT USED FOR UNKNOWN INDICATION
     Dosage: UNK
     Route: 065
  6. ADENOSINE. [Concomitant]
     Active Substance: ADENOSINE
     Indication: SCAN MYOCARDIAL PERFUSION
     Dosage: 0.7 MG/KG
     Route: 065
     Dates: start: 20081203
  7. THYROXINE [Concomitant]
     Active Substance: LEVOTHYROXINE
     Dosage: 250 MG, QD MORNE
     Route: 065
  8. THYROXINE [Concomitant]
     Active Substance: LEVOTHYROXINE
     Dosage: 100 MG
     Route: 065
  9. CLOZARIL [Suspect]
     Active Substance: CLOZAPINE
     Indication: SCHIZOPHRENIA
     Dosage: UNK
     Route: 065
     Dates: start: 2008
  10. THYROXINE [Concomitant]
     Active Substance: LEVOTHYROXINE
     Indication: PRODUCT USED FOR UNKNOWN INDICATION
     Dosage: 100 MG, QD  MORNE
     Route: 065
  11. FLUVOXAMINE [Concomitant]
     Active Substance: FLUVOXAMINE
     Indication: PRODUCT USED FOR UNKNOWN INDICATION
     Dosage: 250 MG, QD, NOCTE
     Route: 065
  12. CARBAMAZEPINE. [Suspect]
     Active Substance: CARBAMAZEPINE
     Dosage: 200 MG MORNING AND 400 MG NIGHT
     Route: 065
  13. LITHIUM [Concomitant]
     Active Substance: LITHIUM CARBONATE
     Indication: PRODUCT USED FOR UNKNOWN INDICATION
     Dosage: 500 MG, QD MORNE
     Route: 065
  14. LACTULOSE. [Concomitant]
     Active Substance: LACTULOSE
     Indication: BOWEL MOVEMENT IRREGULARITY
     Dosage: 30 ML, BID
     Route: 065

REACTIONS (19)
  - Mitral valve incompetence [Unknown]
  - Left atrial dilatation [Unknown]
  - Pericardial effusion [Unknown]
  - Aortic dilatation [Unknown]
  - Atrial fibrillation [Unknown]
  - Left ventricular dysfunction [Unknown]
  - Aortic valve incompetence [Unknown]
  - Tricuspid valve incompetence [Unknown]
  - Exercise tolerance decreased [Unknown]
  - Cognitive disorder [Unknown]
  - Ejection fraction decreased [Unknown]
  - Dependent personality disorder [Unknown]
  - Schizoaffective disorder [Unknown]
  - Mental impairment [Unknown]
  - Ventricular hypokinesia [Unknown]
  - Pulmonary valve incompetence [Unknown]
  - Aggression [Unknown]
  - Ventricular hypertrophy [Unknown]
  - Head injury [Unknown]

NARRATIVE: CASE EVENT DATE: 2008
